FAERS Safety Report 7513022-9 (Version None)
Quarter: 2011Q2

REPORT INFORMATION
  Report Type: 
  Country: None (occurrence: None)
  Receive Date: 20110531
  Receipt Date: 20110524
  Transmission Date: 20111010
  Serious: Yes (Hospitalization, Other)
  Sender: FDA-Public Use
  Company Number: DK-TEVA-283183ISR

PATIENT
  Sex: Female
  Weight: 58 kg

DRUGS (3)
  1. HUMIRA [Interacting]
     Indication: PSORIATIC ARTHROPATHY
     Route: 058
     Dates: start: 20060808, end: 20070925
  2. DICLOFENAC SODIUM [Interacting]
     Indication: ARTHRALGIA
     Dates: start: 20060615, end: 20060101
  3. DESOGESTREL AND ETHINYL ESTRADIOL [Suspect]
     Indication: CONTRACEPTION
     Route: 048
     Dates: start: 19990101, end: 20070101

REACTIONS (4)
  - ABDOMINAL PAIN [None]
  - OVARIAN CYST RUPTURED [None]
  - PERITONEAL HAEMORRHAGE [None]
  - DRUG INTERACTION [None]
